FAERS Safety Report 5481802-X (Version None)
Quarter: 2007Q4

REPORT INFORMATION
  Report Type: 
  Country: None (occurrence: None)
  Receive Date: 20071010
  Receipt Date: 20071002
  Transmission Date: 20080405
  Serious: Yes (Death)
  Sender: FDA-Public Use
  Company Number: SG-ROXANE LABORATORIES, INC-2007-BP-22302RO

PATIENT
  Age: 48 Year
  Sex: Male

DRUGS (5)
  1. PROPRANOLOL [Suspect]
     Indication: PALPITATIONS
     Dates: start: 20060320, end: 20060322
  2. CARBIMAZOLE [Suspect]
     Indication: HYPERTHYROIDISM
     Dates: start: 20060322
  3. GLYBURIDE [Concomitant]
  4. METFORMIN HCL [Concomitant]
  5. PHENTERMINE [Concomitant]
     Dates: end: 20060301

REACTIONS (8)
  - CARDIAC ARREST [None]
  - CIRCULATORY COLLAPSE [None]
  - HEPATITIS [None]
  - HYPOTENSION [None]
  - MULTI-ORGAN FAILURE [None]
  - RENAL FAILURE ACUTE [None]
  - SINUS BRADYCARDIA [None]
  - UNRESPONSIVE TO STIMULI [None]
